FAERS Safety Report 6486573-6 (Version None)
Quarter: 2009Q4

REPORT INFORMATION
  Report Type: 
  Country: None (occurrence: None)
  Receive Date: 20091210
  Receipt Date: 20091126
  Transmission Date: 20100525
  Serious: Yes (Hospitalization, Other)
  Sender: FDA-Public Use
  Company Number: PHHY2009IE24931

PATIENT
  Sex: Male

DRUGS (10)
  1. CLOZARIL [Suspect]
     Indication: SCHIZOPHRENIA
     Dosage: 350 MG, BID
     Route: 048
     Dates: start: 19980811, end: 20090611
  2. CLOZARIL [Suspect]
     Dosage: 200 MG, BID
     Route: 048
     Dates: start: 20090612
  3. CLOZARIL [Suspect]
     Dosage: 100 MG, BID
  4. CLOZARIL [Suspect]
     Dosage: 200 MG, UNK
     Dates: start: 20090723
  5. EPILIM [Concomitant]
  6. VALPROATE SODIUM [Concomitant]
  7. VENTOLIN [Concomitant]
  8. SALAMOL [Concomitant]
  9. SERETIDE [Concomitant]
  10. TAZOCIN [Concomitant]

REACTIONS (18)
  - ABDOMINAL PAIN [None]
  - ASPARTATE AMINOTRANSFERASE INCREASED [None]
  - CIRCULATORY COLLAPSE [None]
  - CONVULSION [None]
  - DEHYDRATION [None]
  - DIARRHOEA [None]
  - FOOT FRACTURE [None]
  - HAEMOGLOBIN DECREASED [None]
  - HYPOTENSION [None]
  - INCORRECT DOSE ADMINISTERED [None]
  - INFLAMMATORY BOWEL DISEASE [None]
  - INTERNATIONAL NORMALISED RATIO INCREASED [None]
  - LIVER FUNCTION TEST ABNORMAL [None]
  - PNEUMONIA [None]
  - RENAL FAILURE [None]
  - RENAL IMPAIRMENT [None]
  - VOMITING [None]
  - WEIGHT DECREASED [None]
